FAERS Safety Report 17224633 (Version 2)
Quarter: 2020Q1

REPORT INFORMATION
  Report Type: Spontaneous
  Country: BR (occurrence: BR)
  Receive Date: 20200102
  Receipt Date: 20200127
  Transmission Date: 20200409
  Serious: Yes (Other)
  Sender: FDA-Public Use
  Company Number: BR-PFIZER INC-2019561540

PATIENT
  Age: 39 Year
  Sex: Female
  Weight: 52 kg

DRUGS (1)
  1. SAYANA [Suspect]
     Active Substance: MEDROXYPROGESTERONE
     Indication: CONTRACEPTION
     Dosage: ONE APPLICATION OF 160MG/ML, EVERY 3 MONTHS
     Route: 058
     Dates: start: 201906

REACTIONS (6)
  - Injection site deformation [Not Recovered/Not Resolved]
  - Amenorrhoea [Not Recovered/Not Resolved]
  - Lipodystrophy acquired [Not Recovered/Not Resolved]
  - Injection site indentation [Not Recovered/Not Resolved]
  - Injection site necrosis [Not Recovered/Not Resolved]
  - Injection site erosion [Not Recovered/Not Resolved]

NARRATIVE: CASE EVENT DATE: 2019
